FAERS Safety Report 10398875 (Version 1)
Quarter: 2014Q3

REPORT INFORMATION
  Report Type: Spontaneous
  Country: US (occurrence: None)
  Receive Date: 20140818
  Receipt Date: 20140818
  Transmission Date: 20150326
  Serious: No
  Sender: FDA-Public Use
  Company Number: None

PATIENT
  Age: 37 Year
  Sex: Male
  Weight: 97.52 kg

DRUGS (2)
  1. NEURONTIN [Suspect]
     Active Substance: GABAPENTIN
     Indication: INTERVERTEBRAL DISC PROTRUSION
     Dosage: 2 PILLS AT NIGHT TWICE DAILY TAKEN BY MOUTH
     Route: 048
  2. NEURONTIN [Suspect]
     Active Substance: GABAPENTIN
     Indication: SPINAL COLUMN STENOSIS
     Dosage: 2 PILLS AT NIGHT TWICE DAILY TAKEN BY MOUTH
     Route: 048

REACTIONS (8)
  - Depression [None]
  - Aggression [None]
  - Nightmare [None]
  - Pain [None]
  - Bedridden [None]
  - Weight increased [None]
  - Paraesthesia [None]
  - Suicidal ideation [None]

NARRATIVE: CASE EVENT DATE: 20140801
